FAERS Safety Report 22084306 (Version 1)
Quarter: 2023Q1

REPORT INFORMATION
  Report Type: Spontaneous
  Country: TW (occurrence: TW)
  Receive Date: 20230310
  Receipt Date: 20230310
  Transmission Date: 20230417
  Serious: Yes (Other)
  Sender: FDA-Public Use
  Company Number: TW-MYLANLABS-2023M1025160

PATIENT
  Sex: Female

DRUGS (1)
  1. CELEBREX [Suspect]
     Active Substance: CELECOXIB
     Indication: Pain
     Dosage: 200 MILLIGRAM, QD
     Route: 065

REACTIONS (4)
  - Haematochezia [Unknown]
  - Oral herpes [Unknown]
  - Mouth ulceration [Unknown]
  - Oedema [Unknown]
